FAERS Safety Report 10740100 (Version 1)
Quarter: 2015Q1

REPORT INFORMATION
  Report Type: Spontaneous
  Country: DE (occurrence: DE)
  Receive Date: 20150127
  Receipt Date: 20150127
  Transmission Date: 20150721
  Serious: Yes (Hospitalization)
  Sender: FDA-Public Use
  Company Number: DE-ROCHE-1524719

PATIENT
  Age: 64 Year
  Sex: Female

DRUGS (1)
  1. ZELBORAF [Suspect]
     Active Substance: VEMURAFENIB
     Indication: METASTATIC MALIGNANT MELANOMA
     Dosage: A: DAILY DOSE: 16DF ODSAGE FORM EVERY DAY?B: 48 DF DOSAGE FORM ?C: 4 DFDOSAGE FORM, D: 4, E: 1 DAY
     Route: 048
     Dates: start: 20140929

REACTIONS (6)
  - Pulmonary embolism [Unknown]
  - Erythema nodosum [Unknown]
  - Weight decreased [Unknown]
  - Arthralgia [Unknown]
  - Somnolence [Unknown]
  - Decreased appetite [Unknown]

NARRATIVE: CASE EVENT DATE: 20141001
